FAERS Safety Report 14349948 (Version 1)
Quarter: 2018Q1

REPORT INFORMATION
  Report Type: Spontaneous
  Country: US (occurrence: US)
  Receive Date: 20180104
  Receipt Date: 20180104
  Transmission Date: 20180509
  Serious: Yes (Other)
  Sender: FDA-Public Use
  Company Number: US-BEH-2017086363

PATIENT
  Sex: Female
  Weight: 61.22 kg

DRUGS (13)
  1. HIZENTRA [Suspect]
     Active Substance: HUMAN IMMUNOGLOBULIN G
     Dosage: UNK
     Route: 058
  2. SYMBICORT [Concomitant]
     Active Substance: BUDESONIDE\FORMOTEROL FUMARATE DIHYDRATE
  3. AZITHROMYCIN ANHYDROUS. [Concomitant]
     Active Substance: AZITHROMYCIN ANHYDROUS
  4. LYRICA [Concomitant]
     Active Substance: PREGABALIN
  5. HIZENTRA [Suspect]
     Active Substance: HUMAN IMMUNOGLOBULIN G
     Dosage: UNK
     Route: 058
  6. MONTELUKAST [Concomitant]
     Active Substance: MONTELUKAST SODIUM
  7. SUMATRIPTAN. [Concomitant]
     Active Substance: SUMATRIPTAN
  8. BENZONATATE. [Concomitant]
     Active Substance: BENZONATATE
  9. LASIX [Concomitant]
     Active Substance: FUROSEMIDE
  10. PROAIR HFA [Concomitant]
     Active Substance: ALBUTEROL SULFATE
  11. HIZENTRA [Suspect]
     Active Substance: HUMAN IMMUNOGLOBULIN G
     Indication: IMMUNODEFICIENCY
     Dosage: 14 G, QW
     Route: 058
     Dates: start: 20170922
  12. IBUPROFEN. [Concomitant]
     Active Substance: IBUPROFEN
  13. ONDANSETRON [Concomitant]
     Active Substance: ONDANSETRON

REACTIONS (4)
  - Crohn^s disease [Unknown]
  - Eye infection [Recovered/Resolved]
  - Gastric disorder [Unknown]
  - Gastroenteritis [Unknown]
